FAERS Safety Report 21297708 (Version 1)
Quarter: 2022Q3

REPORT INFORMATION
  Report Type: Spontaneous
  Country: US (occurrence: US)
  Receive Date: 20220906
  Receipt Date: 20220906
  Transmission Date: 20221027
  Serious: Yes (Hospitalization)
  Sender: FDA-Public Use
  Company Number: US-MYLANLABS-2022M1090796

PATIENT
  Age: 70 Year
  Sex: Male

DRUGS (1)
  1. SULFAMETHOXAZOLE\TRIMETHOPRIM [Suspect]
     Active Substance: SULFAMETHOXAZOLE\TRIMETHOPRIM
     Indication: Pulmonary nocardiosis
     Dosage: 800-160 MG, THREE PILLS, THREE TIMES DAILY
     Route: 065

REACTIONS (4)
  - Nephrolithiasis [Recovered/Resolved]
  - Urinary tract obstruction [Recovered/Resolved]
  - Thrombosis [Recovered/Resolved]
  - Renal failure [Not Recovered/Not Resolved]
